FAERS Safety Report 10419544 (Version 1)
Quarter: 2014Q2

REPORT INFORMATION
  Report Type: Spontaneous
  Country: US (occurrence: None)
  Receive Date: 20140625
  Receipt Date: 20140625
  Transmission Date: 20141212
  Serious: No
  Sender: FDA-Public Use
  Company Number: A-NJ2014-95590

PATIENT
  Age: 60 Year
  Sex: Female

DRUGS (3)
  1. VENTAVIS [Suspect]
     Indication: COR PULMONALE CHRONIC
     Dosage: RESPIRATORY
  2. OPSUMIT (MACITENTAN) [Suspect]
     Route: 048
     Dates: start: 20140222
  3. RIOCIGUAT [Concomitant]

REACTIONS (2)
  - Oedema peripheral [None]
  - Diarrhoea [None]
